FAERS Safety Report 10828688 (Version 1)
Quarter: 2015Q1

REPORT INFORMATION
  Report Type: Report from Study
  Country: PR (occurrence: PR)
  Receive Date: 20150219
  Receipt Date: 20150219
  Transmission Date: 20150721
  Serious: No
  Sender: FDA-Public Use
  Company Number: PR-ABBVIE-14P-131-1208457-00

PATIENT
  Age: 38 Year
  Sex: Female

DRUGS (1)
  1. HUMIRA [Suspect]
     Active Substance: ADALIMUMAB
     Indication: PRODUCT USED FOR UNKNOWN INDICATION
     Route: 058
     Dates: start: 20140212

REACTIONS (4)
  - Toothache [Recovered/Resolved]
  - Drug ineffective [Unknown]
  - Skin plaque [Unknown]
  - Rhinalgia [Recovered/Resolved]

NARRATIVE: CASE EVENT DATE: 20140219
